FAERS Safety Report 7060441-3 (Version None)
Quarter: 2010Q4

REPORT INFORMATION
  Report Type: 
  Country: None (occurrence: None)
  Receive Date: 20101025
  Receipt Date: 20101006
  Transmission Date: 20110411
  Serious: Yes (Hospitalization, Other)
  Sender: FDA-Public Use
  Company Number: US-ROCHE-718724

PATIENT
  Age: 66 Year
  Sex: Male
  Weight: 72 kg

DRUGS (23)
  1. BEVACIZUMAB [Suspect]
     Dosage: DOSE LEVEL: 15 MG/KG, FREQUENCY QDAY 1 OF 21 DAY CYCLE.
     Route: 042
     Dates: start: 20100729
  2. BEVACIZUMAB [Suspect]
     Dosage: DOSE LEVEL: 15 MG/KG, FREQUENCY:QDAY1
     Route: 042
     Dates: start: 20100819
  3. DOCETAXEL [Suspect]
     Dosage: DOSE LEVEL: 75 MG/M2, FREQUENCY: Q DAY1 OF 21 DAY CYCLE.
     Route: 042
     Dates: start: 20100729
  4. DOCETAXEL [Suspect]
     Dosage: DOSE LEVEL: 56.2 MG/M2, FREQUENCY: QDAY1
     Route: 042
     Dates: start: 20100819
  5. GEMCITABINE [Suspect]
     Dosage: DOSE LEVEL: 900 MG/M2, FREQUENCY: DAY 1,8 OF 21 DAY CYCLE.
     Route: 042
     Dates: start: 20100729
  6. GEMCITABINE [Suspect]
     Dosage: DOSE LEVEL: 675 MG/M2, FREQUENCY: DAY 1, 8
     Route: 042
     Dates: start: 20100819
  7. BACLOFEN [Concomitant]
     Indication: HICCUPS
     Dosage: FREQUENCY: 10 MG EVERY 8 HRS, PRN.
  8. DOCUSATE SODIUM/SENNOSIDES [Concomitant]
     Dosage: DOSE 8.6/ 50 MG, FRQ: 2 TABLET BID.
  9. OXYCODONE [Concomitant]
     Indication: PAIN
     Dosage: DOSE: 1-2 TAB, EVERY 4-6 HR PRN
  10. OXYCODONE HYDROCHLORIDE [Concomitant]
  11. OXYCODONE HYDROCHLORIDE [Concomitant]
  12. LISINOPRIL [Concomitant]
  13. DEXAMETHASONE [Concomitant]
     Dosage: START DATE: ADY 2 OF CHEMO X 3 DAY.
  14. CITALOPRAM HYDROCHLORIDE [Concomitant]
  15. VICODIN [Concomitant]
  16. ALIMTA [Concomitant]
  17. CARBOPLATIN [Concomitant]
  18. PROCHLORPERAZINE [Concomitant]
     Indication: NAUSEA
     Dosage: FREQUENCY: Q6HRS PRN
  19. LORAZEPAM [Concomitant]
     Indication: NAUSEA
     Dosage: FREQUENCY: Q8HRS PRN
  20. METOCLOPRAMIDE [Concomitant]
  21. LEVOTHYROXINE [Concomitant]
  22. PANTOPRAZOLE [Concomitant]
  23. FOLIC ACID [Concomitant]

REACTIONS (4)
  - ANAEMIA [None]
  - LUNG INFECTION [None]
  - PNEUMONIA ASPIRATION [None]
  - THROMBOCYTOPENIA [None]
